FAERS Safety Report 24013664 (Version 11)
Quarter: 2025Q2

REPORT INFORMATION
  Report Type: Spontaneous
  Country: US (occurrence: US)
  Receive Date: 20240626
  Receipt Date: 20250507
  Transmission Date: 20250716
  Serious: Yes (Hospitalization, Other)
  Sender: UNITED THERAPEUTICS
  Company Number: US-UNITED THERAPEUTICS-UNT-2024-018642

PATIENT
  Age: 40 Year
  Sex: Female
  Weight: 69.841 kg

DRUGS (20)
  1. REMODULIN [Suspect]
     Active Substance: TREPROSTINIL
     Indication: Pulmonary arterial hypertension
  2. REMODULIN [Suspect]
     Active Substance: TREPROSTINIL
  3. REMODULIN [Suspect]
     Active Substance: TREPROSTINIL
  4. REMODULIN [Suspect]
     Active Substance: TREPROSTINIL
  5. REMODULIN [Suspect]
     Active Substance: TREPROSTINIL
  6. SPIRIVA [Concomitant]
     Active Substance: TIOTROPIUM BROMIDE MONOHYDRATE
     Indication: Product used for unknown indication
  7. TADALAFIL [Concomitant]
     Active Substance: TADALAFIL
     Indication: Product used for unknown indication
  8. LASIX [Concomitant]
     Active Substance: FUROSEMIDE
     Indication: Product used for unknown indication
  9. PANTOPRAZOLE SODIUM [Concomitant]
     Active Substance: PANTOPRAZOLE SODIUM
     Indication: Product used for unknown indication
  10. OPSUMIT [Concomitant]
     Active Substance: MACITENTAN
     Indication: Product used for unknown indication
  11. VITAMIN B12 [Concomitant]
     Active Substance: CYANOCOBALAMIN
     Indication: Product used for unknown indication
  12. SPIRONOLACTONE [Concomitant]
     Active Substance: SPIRONOLACTONE
     Indication: Product used for unknown indication
  13. OXYGEN [Concomitant]
     Active Substance: OXYGEN
     Indication: Product used for unknown indication
  14. MECLIZINE HYDROCHLORIDE [Concomitant]
     Active Substance: MECLIZINE HYDROCHLORIDE
     Indication: Product used for unknown indication
  15. GABAPENTIN [Concomitant]
     Active Substance: GABAPENTIN
     Indication: Product used for unknown indication
  16. TYLENOL EXTRA STRENGTH [Concomitant]
     Active Substance: ACETAMINOPHEN
     Indication: Product used for unknown indication
  17. POTASSIUM CHLORIDE [Concomitant]
     Active Substance: POTASSIUM CHLORIDE
     Indication: Product used for unknown indication
  18. BLISOVI FE 1/20 [Concomitant]
     Active Substance: ETHINYL ESTRADIOL\NORETHINDRONE ACETATE
     Indication: Product used for unknown indication
  19. TRELEGY ELLIPTA [Concomitant]
     Active Substance: FLUTICASONE FUROATE\UMECLIDINIUM BROMIDE\VILANTEROL TRIFENATATE
     Indication: Product used for unknown indication
  20. SOTATERCEPT [Concomitant]
     Active Substance: SOTATERCEPT
     Indication: Product used for unknown indication

REACTIONS (26)
  - Progressive multiple sclerosis [Not Recovered/Not Resolved]
  - Pleural effusion [Unknown]
  - Exercise tolerance decreased [Unknown]
  - Diastolic dysfunction [Unknown]
  - Hypervolaemia [Unknown]
  - Cardiac failure [Unknown]
  - Device wireless communication issue [Recovered/Resolved]
  - Syncope [Unknown]
  - Panic attack [Unknown]
  - Fatigue [Unknown]
  - Lethargy [Unknown]
  - Device issue [Unknown]
  - Device issue [Unknown]
  - Device wireless communication issue [Unknown]
  - Device wireless communication issue [Unknown]
  - Device issue [Unknown]
  - Device issue [Unknown]
  - Device occlusion [Recovered/Resolved]
  - Device issue [Recovered/Resolved]
  - Device occlusion [Recovered/Resolved]
  - Incorrect drug administration rate [Unknown]
  - Device occlusion [Unknown]
  - Device occlusion [Unknown]
  - Device occlusion [Unknown]
  - Device alarm issue [Unknown]
  - Device alarm issue [Unknown]

NARRATIVE: CASE EVENT DATE: 20240601
